FAERS Safety Report 24638352 (Version 1)
Quarter: 2024Q4

REPORT INFORMATION
  Report Type: Spontaneous
  Country: CA (occurrence: CA)
  Receive Date: 20241119
  Receipt Date: 20241119
  Transmission Date: 20250115
  Serious: Yes (Hospitalization)
  Sender: MYLAN
  Company Number: CA-MYLANLABS-2024M1103324

PATIENT
  Age: 37 Year
  Sex: Female

DRUGS (7)
  1. VALPROIC ACID [Suspect]
     Active Substance: VALPROIC ACID
     Indication: Schizoaffective disorder
     Dosage: 1500 MILLIGRAM, QD (EVERY 1 DAYS)
     Route: 065
  2. LOXAPINE [Suspect]
     Active Substance: LOXAPINE
     Indication: Schizoaffective disorder
     Dosage: 25 MILLIGRAM, QD (EVERY 1 DAYS)
     Route: 065
  3. OXCARBAZEPINE [Suspect]
     Active Substance: OXCARBAZEPINE
     Indication: Schizoaffective disorder
     Dosage: 600 MILLIGRAM, QD (EVERY 1 DAYS)
     Route: 065
  4. PALIPERIDONE [Suspect]
     Active Substance: PALIPERIDONE
     Indication: Schizoaffective disorder
     Dosage: 150 MILLIGRAM
     Route: 030
  5. QUETIAPINE [Suspect]
     Active Substance: QUETIAPINE
     Indication: Schizoaffective disorder
     Dosage: 500 MILLIGRAM, QD (EVERY 1 DAYS)
     Route: 048
  6. ZUCLOPENTHIXOL [Suspect]
     Active Substance: ZUCLOPENTHIXOL
     Indication: Schizoaffective disorder
     Dosage: 150 MILLIGRAM
     Route: 030
  7. LITHIUM CARBONATE [Suspect]
     Active Substance: LITHIUM CARBONATE
     Indication: Schizoaffective disorder
     Dosage: 1200 MILLIGRAM, QD (EVERY 1 DAYS)
     Route: 065

REACTIONS (1)
  - Drug ineffective [Unknown]
